FAERS Safety Report 14175411 (Version 1)
Quarter: 2017Q4

REPORT INFORMATION
  Report Type: Spontaneous
  Country: ES (occurrence: ES)
  Receive Date: 20171109
  Receipt Date: 20171109
  Transmission Date: 20180321
  Serious: Yes (Hospitalization, Other)
  Sender: FDA-Public Use
  Company Number: ES-PFIZER INC-2017478935

PATIENT
  Age: 58 Year
  Sex: Female

DRUGS (5)
  1. MEROPENEM. [Suspect]
     Active Substance: MEROPENEM
     Indication: SEPSIS
     Dosage: 1 G, 2X/DAY
     Route: 042
     Dates: start: 20170521, end: 20170605
  2. PARACETAMOL [Concomitant]
     Active Substance: ACETAMINOPHEN
     Indication: PAIN
     Dosage: 1 G, 3X/DAY
     Route: 042
     Dates: start: 20170517
  3. METAMIZOL NORMON [Concomitant]
     Indication: PYREXIA
     Dosage: 3 G, 2X/DAY
     Route: 042
     Dates: start: 20170523, end: 20170523
  4. OMEPRAZOL VIR [Concomitant]
     Indication: PROPHYLAXIS
     Dosage: 20 MG, 1X/DAY
     Route: 048
  5. PIPERACILLIN AND TAZOBACTAM [Interacting]
     Active Substance: PIPERACILLIN SODIUM\TAZOBACTAM SODIUM
     Indication: SEPSIS
     Dosage: 3 G, 3X/DAY
     Route: 042
     Dates: start: 20170521, end: 20170526

REACTIONS (2)
  - Drug interaction [Recovered/Resolved]
  - Cholestasis [Recovered/Resolved]

NARRATIVE: CASE EVENT DATE: 20170526
